FAERS Safety Report 25740139 (Version 2)
Quarter: 2025Q4

REPORT INFORMATION
  Report Type: Spontaneous
  Country: EU (occurrence: EU)
  Receive Date: 20250829
  Receipt Date: 20251014
  Transmission Date: 20260117
  Serious: Yes (Hospitalization, Other)
  Sender: MYLAN
  Company Number: EU-MYLANLABS-2025M1073071

PATIENT
  Age: 13 Year
  Sex: Female

DRUGS (25)
  1. CLOZAPINE [Suspect]
     Active Substance: CLOZAPINE
     Indication: Bipolar I disorder
     Dosage: UNK
  2. CLOZAPINE [Suspect]
     Active Substance: CLOZAPINE
     Dosage: 100 MILLIGRAM (TITRATED TO 100MG IN APPROXIMATELY 10 DAYS)
  3. CLOZAPINE [Suspect]
     Active Substance: CLOZAPINE
     Dosage: UNK (TAPERED DOWN)
     Dates: start: 20220414, end: 20220418
  4. CLOZAPINE [Suspect]
     Active Substance: CLOZAPINE
     Dosage: UNK, BID, SLOW WEEKLY DOSE INCREMENTS OF 12.5 MG/D
     Dates: start: 20220822
  5. CLOZAPINE [Suspect]
     Active Substance: CLOZAPINE
     Dosage: 12.5 MILLIGRAM, BID
     Dates: start: 20220826, end: 20220901
  6. CLOZAPINE [Suspect]
     Active Substance: CLOZAPINE
     Dosage: 25 MILLIGRAM, BID
     Dates: start: 20220902, end: 20220908
  7. CLOZAPINE [Suspect]
     Active Substance: CLOZAPINE
     Dosage: 37.5 MILLIGRAM, BID
     Dates: start: 20220909, end: 20220915
  8. CLOZAPINE [Suspect]
     Active Substance: CLOZAPINE
     Dosage: 50 MILLIGRAM, BID
     Dates: start: 20220916, end: 20220922
  9. CLOZAPINE [Suspect]
     Active Substance: CLOZAPINE
     Dosage: 62.5 MILLIGRAM, BID
     Dates: start: 20220923, end: 20220929
  10. CLOZAPINE [Suspect]
     Active Substance: CLOZAPINE
     Dosage: 75 MILLIGRAM, BID
     Dates: start: 20220930, end: 20221006
  11. CLOZAPINE [Suspect]
     Active Substance: CLOZAPINE
     Dosage: 87.5 MILLIGRAM, BID
     Dates: start: 20221007, end: 20221016
  12. CLOZAPINE [Suspect]
     Active Substance: CLOZAPINE
     Dosage: 100 MILLIGRAM, BID
     Dates: start: 20221017, end: 20221023
  13. CLOZAPINE [Suspect]
     Active Substance: CLOZAPINE
     Dosage: UNK, INCREASED BY 12.5MG
  14. CLOZAPINE [Suspect]
     Active Substance: CLOZAPINE
     Dosage: 112.5 MILLIGRAM, BID
     Dates: start: 20221024, end: 20221026
  15. CLOZAPINE [Suspect]
     Active Substance: CLOZAPINE
     Dosage: 125 MILLIGRAM, BID
     Dates: start: 20221027, end: 20221101
  16. CLOZAPINE [Suspect]
     Active Substance: CLOZAPINE
     Dosage: 125 MILLIGRAM, QD, INCREASED AGAIN BY 12.5MG THREE DAYS LATER, REACHING A TOTAL DOSE OF 125 MG/DAY
     Dates: start: 20221027
  17. CLOZAPINE [Suspect]
     Active Substance: CLOZAPINE
     Dosage: UNK (DOSE DECREASED)
  18. HALOPERIDOL [Concomitant]
     Active Substance: HALOPERIDOL
     Indication: Bipolar I disorder
     Dosage: 3 MILLIGRAM, QD
     Dates: start: 2022, end: 2022
  19. HALOPERIDOL [Concomitant]
     Active Substance: HALOPERIDOL
     Dosage: 1 MILLIGRAM, QD 9GRADUALLY DECREASED)
     Dates: start: 2022
  20. LURASIDONE [Concomitant]
     Active Substance: LURASIDONE
     Indication: Bipolar I disorder
     Dosage: 111 MILLIGRAM, QD
     Dates: start: 202207, end: 2022
  21. LURASIDONE [Concomitant]
     Active Substance: LURASIDONE
     Dosage: 37 MILLIGRAM, QD
  22. LURASIDONE [Concomitant]
     Active Substance: LURASIDONE
     Dosage: UNK
  23. BISOPROLOL [Concomitant]
     Active Substance: BISOPROLOL
     Indication: Mitral valve incompetence
     Dosage: 1.25 MILLIGRAM, QD
     Dates: start: 2022
  24. BISOPROLOL [Concomitant]
     Active Substance: BISOPROLOL
     Indication: Pericardial effusion
  25. METFORMIN [Concomitant]
     Active Substance: METFORMIN HYDROCHLORIDE
     Indication: Weight increased
     Dosage: UNK, TITRATED UP TO 1000 MG/DAY

REACTIONS (8)
  - Tachycardia [Recovering/Resolving]
  - Myocarditis [Recovered/Resolved]
  - Pericarditis [Recovered/Resolved]
  - Mitral valve incompetence [Recovering/Resolving]
  - Pericardial effusion [Recovering/Resolving]
  - Cardiotoxicity [Recovered/Resolved]
  - Weight increased [Unknown]
  - Off label use [Unknown]

NARRATIVE: CASE EVENT DATE: 20220101
